FAERS Safety Report 8635018 (Version 3)
Quarter: 2012Q4

REPORT INFORMATION
  Report Type: Spontaneous
  Country: JP (occurrence: None)
  Receive Date: 20120612
  Receipt Date: 20121004
  Transmission Date: 20130627
  Serious: Yes (Death, Hospitalization)
  Sender: FDA-Public Use
  Company Number: 2012-002061

PATIENT
  Age: 74 Year
  Sex: Female
  Weight: 61 kg

DRUGS (3)
  1. RISEDRONATE SODIUM [Suspect]
     Indication: OSTEOPOROSIS
     Route: 048
     Dates: start: 20080515, end: 20120111
  2. FARESTON [Concomitant]
  3. FEMARA [Concomitant]

REACTIONS (23)
  - Oesophageal stenosis [None]
  - Dehydration [None]
  - Pneumonia [None]
  - Dysphagia [None]
  - Oesophagitis [None]
  - Decreased appetite [None]
  - Cough [None]
  - Fatigue [None]
  - Gastrooesophageal reflux disease [None]
  - White blood cell count increased [None]
  - Haemoglobin decreased [None]
  - Platelet count increased [None]
  - Cardiomegaly [None]
  - Respiratory failure [None]
  - Malignant pleural effusion [None]
  - Hiatus hernia [None]
  - Gastritis erosive [None]
  - Gastric polyps [None]
  - Duodenal polyp [None]
  - Pericardial effusion [None]
  - Tracheal stenosis [None]
  - Atelectasis [None]
  - General physical health deterioration [None]
